FAERS Safety Report 6641274-6 (Version None)
Quarter: 2010Q1

REPORT INFORMATION
  Report Type: 
  Country: None (occurrence: None)
  Receive Date: 20100318
  Receipt Date: 20100308
  Transmission Date: 20100710
  Serious: Yes (Other)
  Sender: FDA-Public Use
  Company Number: BR-PFIZER INC-2009303650

PATIENT
  Age: 73 Year
  Sex: Female
  Weight: 63 kg

DRUGS (5)
  1. FRONTAL [Suspect]
     Indication: DEPRESSION
     Dosage: 1 MG, 1X/DAY
     Route: 048
     Dates: start: 20100201
  2. FRONTAL [Suspect]
     Indication: SLEEP DISORDER
  3. PROPRANOLOL [Concomitant]
     Dosage: UNK
  4. RANITIDINE [Concomitant]
     Dosage: UNK
  5. OMEPRAZOLE [Concomitant]
     Dosage: UNK

REACTIONS (12)
  - ARRHYTHMIA [None]
  - ASTHENIA [None]
  - DECREASED APPETITE [None]
  - DEPRESSED MOOD [None]
  - DYSGEUSIA [None]
  - GASTROINTESTINAL PAIN [None]
  - IRRITABILITY [None]
  - LIVER DISORDER [None]
  - MUSCULAR WEAKNESS [None]
  - NAUSEA [None]
  - POOR QUALITY SLEEP [None]
  - WEIGHT DECREASED [None]
